FAERS Safety Report 7120962-1 (Version None)
Quarter: 2010Q4

REPORT INFORMATION
  Report Type: 
  Country: None (occurrence: None)
  Receive Date: 20101124
  Receipt Date: 20100125
  Transmission Date: 20110411
  Serious: No
  Sender: FDA-Public Use
  Company Number: US-PFIZER INC-2010010655

PATIENT
  Sex: Female
  Weight: 94.331 kg

DRUGS (7)
  1. TIKOSYN [Suspect]
     Indication: ATRIAL FIBRILLATION
     Dosage: 250 UG, 2X/DAY
     Route: 048
     Dates: start: 20090701
  2. LASIX [Concomitant]
     Dosage: 20 MG, DAILY
     Route: 048
  3. POTASSIUM CHLORIDE [Concomitant]
     Dosage: 20 MG, DAILY
     Route: 048
  4. VALSARTAN [Concomitant]
     Dosage: 320 MG, DAILY
     Route: 048
  5. AMLODIPINE BESYLATE [Concomitant]
     Dosage: 10 MG, DAILY
     Route: 048
  6. ALPRAZOLAM [Concomitant]
     Dosage: 0.25 MG, AS NEEDED
     Route: 048
  7. SIMVASTATIN [Concomitant]
     Dosage: 40 MG, DAILY
     Route: 048

REACTIONS (1)
  - ATRIAL FIBRILLATION [None]
